FAERS Safety Report 6324518-X (Version None)
Quarter: 2009Q3

REPORT INFORMATION
  Report Type: 
  Country: None (occurrence: None)
  Receive Date: 20090824
  Receipt Date: 20090814
  Transmission Date: 20100115
  Serious: Yes (Other)
  Sender: FDA-Public Use
  Company Number: NL-JNJFOC-20090707210

PATIENT
  Sex: Female
  Weight: 97 kg

DRUGS (4)
  1. CAELYX [Suspect]
     Indication: OVARIAN CANCER
     Route: 042
  2. METOPROLOL TARTRATE [Concomitant]
     Route: 065
  3. HYDROCHLOROTHIAZIDE [Concomitant]
     Route: 065
  4. LORAZEPAM [Concomitant]
     Route: 065

REACTIONS (1)
  - INTERSTITIAL LUNG DISEASE [None]
